FAERS Safety Report 8279339-8 (Version None)
Quarter: 2012Q2

REPORT INFORMATION
  Report Type: 
  Country: None (occurrence: None)
  Receive Date: 20120412
  Receipt Date: 20110811
  Transmission Date: 20120825
  Serious: No
  Sender: FDA-Public Use
  Company Number: US-ASTRAZENECA-2011SE48080

PATIENT
  Age: 68 Year
  Sex: Female

DRUGS (4)
  1. PRILOSEC [Suspect]
     Route: 048
     Dates: end: 20080101
  2. NEXIUM [Suspect]
     Indication: GASTROOESOPHAGEAL REFLUX DISEASE
     Route: 048
     Dates: start: 20080101
  3. TRENTAL [Concomitant]
  4. THYROID MEDICATION [Concomitant]

REACTIONS (3)
  - CONDITION AGGRAVATED [None]
  - OSTEOPENIA [None]
  - OSTEOPOROSIS [None]
